FAERS Safety Report 4950045-8 (Version None)
Quarter: 2006Q1

REPORT INFORMATION
  Report Type: 
  Country: None (occurrence: None)
  Receive Date: 20060320
  Receipt Date: 20060320
  Transmission Date: 20060701
  Serious: No
  Sender: FDA-Public Use
  Company Number: None

PATIENT
  Age: 53 Year
  Sex: Female
  Weight: 81.6475 kg

DRUGS (1)
  1. AMBIEN [Suspect]
     Indication: INSOMNIA
     Dosage: ONE BEFORE BED   QPM  PO
     Route: 048
     Dates: start: 20020820, end: 20021123

REACTIONS (4)
  - ABNORMAL BEHAVIOUR [None]
  - EMOTIONAL DISORDER [None]
  - MEMORY IMPAIRMENT [None]
  - SUICIDAL IDEATION [None]
